FAERS Safety Report 20430367 (Version 1)
Quarter: 2022Q1

REPORT INFORMATION
  Report Type: Report from Study
  Country: FR (occurrence: FR)
  Receive Date: 20220204
  Receipt Date: 20220204
  Transmission Date: 20220424
  Serious: Yes (Hospitalization)
  Sender: FDA-Public Use
  Company Number: FR-SERVIER-S20006929

PATIENT

DRUGS (18)
  1. PEGASPARGASE [Suspect]
     Active Substance: PEGASPARGASE
     Indication: Acute lymphocytic leukaemia
     Dosage: 825 IU, ON D12, D26
     Route: 042
     Dates: start: 20200517, end: 20200529
  2. DEXAMETHASONE [Suspect]
     Active Substance: DEXAMETHASONE
     Indication: Acute lymphocytic leukaemia
     Dosage: 7.5 MG, ON D8 TO D28
     Route: 048
     Dates: start: 20200513, end: 20200602
  3. PREDNISOLONE [Suspect]
     Active Substance: PREDNISOLONE
     Indication: Acute lymphocytic leukaemia
     Dosage: 6.7 MG, ON D1 TO D7
     Route: 048
  4. PREDNISOLONE [Suspect]
     Active Substance: PREDNISOLONE
     Dosage: 38 MG, D1-D7
     Route: 042
     Dates: start: 20200506, end: 20200515
  5. TN UNSPECIFIED [Concomitant]
     Indication: Acute lymphocytic leukaemia
     Dosage: 0.9 MG, ON D8,D15,D22,D29
     Route: 042
     Dates: start: 20200513, end: 20200603
  6. TN UNSPECIFIED [Concomitant]
     Indication: Acute lymphocytic leukaemia
     Dosage: 19 MG, ON D8,D15,D22,D29
     Route: 042
     Dates: start: 20200513, end: 20200603
  7. TN UNSPECIFIED [Concomitant]
     Indication: Acute lymphocytic leukaemia
     Dosage: 12 MG, ON D13 , D24
     Route: 037
     Dates: start: 20200518, end: 20200529
  8. TN UNSPECIFIED [Concomitant]
     Indication: Pain
     Dosage: 920 MG, QD
     Route: 048
     Dates: start: 20200506
  9. TN UNSPECIFIED [Concomitant]
     Indication: Pyrexia
     Dosage: 920 MG, QD
     Route: 042
     Dates: start: 20200506
  10. BACTRIM [Concomitant]
     Active Substance: SULFAMETHOXAZOLE\TRIMETHOPRIM
     Indication: Antifungal prophylaxis
     Dosage: 400 MG, QD
     Route: 048
     Dates: start: 20200513
  11. Calcit D3 [Concomitant]
     Indication: Bone disorder
     Dosage: 500 MG, QD
     Route: 048
     Dates: start: 20200513
  12. Calcit D3 [Concomitant]
     Indication: Prophylaxis
  13. TN UNSPECIFIED [Concomitant]
     Indication: Bone disorder
     Dosage: 50 MUI QD
     Route: 048
     Dates: start: 20200513
  14. ONDANSETRON [Concomitant]
     Active Substance: ONDANSETRON
     Indication: Nausea
     Dosage: 12 MG, QD
     Route: 048
     Dates: start: 20200513
  15. ONDANSETRON [Concomitant]
     Active Substance: ONDANSETRON
     Indication: Vomiting
     Dosage: 12 MG, QD
     Route: 042
     Dates: start: 20200513
  16. AMBISOME [Concomitant]
     Active Substance: AMPHOTERICIN B
     Indication: Antifungal prophylaxis
     Dosage: 15 MG, QD
     Route: 042
     Dates: start: 20200513, end: 20200613
  17. ATARAX [Concomitant]
     Active Substance: HYDROXYZINE HYDROCHLORIDE
     Indication: Sleep disorder
     Dosage: 7 MG, QD
     Route: 048
     Dates: start: 20200514
  18. DUPHALAC [Concomitant]
     Active Substance: LACTULOSE
     Indication: Constipation
     Dosage: 10 ML, QD
     Route: 048
     Dates: start: 20200522

REACTIONS (1)
  - Oedema [Recovered/Resolved]

NARRATIVE: CASE EVENT DATE: 20200611
